FAERS Safety Report 6064387-9 (Version None)
Quarter: 2009Q1

REPORT INFORMATION
  Report Type: 
  Country: None (occurrence: None)
  Receive Date: 20090204
  Receipt Date: 20090105
  Transmission Date: 20090719
  Serious: No
  Sender: FDA-Public Use
  Company Number: DE-EISAI MEDIAL RESEARCH-E3810-02406-SPO-DE

PATIENT
  Age: 55 Year
  Sex: Male
  Weight: 85 kg

DRUGS (1)
  1. RABEPRAZOLE SODIUM [Suspect]
     Indication: GASTRIC ULCER
     Route: 048
     Dates: start: 20081001

REACTIONS (3)
  - BLOOD ALKALINE PHOSPHATASE INCREASED [None]
  - BLOOD CHROMOGRANIN A INCREASED [None]
  - NEURON-SPECIFIC ENOLASE INCREASED [None]
